FAERS Safety Report 7397917-5 (Version None)
Quarter: 2011Q2

REPORT INFORMATION
  Report Type: 
  Country: None (occurrence: None)
  Receive Date: 20110406
  Receipt Date: 20110330
  Transmission Date: 20111010
  Serious: Yes (Other)
  Sender: FDA-Public Use
  Company Number: FR-PFIZER INC-2010176653

PATIENT
  Age: 78 Year
  Sex: Female

DRUGS (11)
  1. SPECIAFOLDINE [Suspect]
     Dosage: EVERYDAY EXCEPT MONDAYS
     Route: 048
  2. FOSAMAX [Suspect]
     Dosage: 1 DF, WEEKLY
     Route: 048
  3. FEMARA [Suspect]
     Indication: BREAST CANCER
     Dosage: UNK
     Route: 048
  4. ZELITREX [Suspect]
     Dosage: UNK
     Route: 048
  5. CORTANCYL [Suspect]
     Indication: DERMATOMYOSITIS
     Dosage: 70 MG, (THEN DOSE REDUCED)
     Route: 048
     Dates: start: 20090701
  6. CACIT D3 [Suspect]
     Dosage: 1 DOSAGE FORMS
     Route: 048
  7. ESCITALOPRAM [Suspect]
     Indication: DEPRESSION
     Dosage: UNK
     Route: 048
  8. INIPOMP [Suspect]
     Dosage: 40 MG, 1X/DAY
     Route: 048
  9. PLAQUENIL [Suspect]
     Indication: DERMATOMYOSITIS
     Dosage: 200 MG, 2X/DAY
     Route: 048
     Dates: start: 20090501, end: 20091001
  10. IRBESARTAN [Suspect]
     Indication: HYPERTENSION
     Dosage: UNK
     Route: 048
  11. METOJECT [Suspect]
     Indication: DERMATOMYOSITIS
     Dosage: 10 MG, EVERY MONDAY

REACTIONS (1)
  - CATARACT [None]
